FAERS Safety Report 14756216 (Version 2)
Quarter: 2018Q2

REPORT INFORMATION
  Report Type: Report from Study
  Country: US (occurrence: US)
  Receive Date: 20180413
  Receipt Date: 20180419
  Transmission Date: 20180711
  Serious: Yes (Hospitalization, Other)
  Sender: FDA-Public Use
  Company Number: US-GILEAD-2018-0332589

PATIENT
  Age: 61 Year
  Sex: Male
  Weight: 114.74 kg

DRUGS (15)
  1. WARFARIN [Concomitant]
     Active Substance: WARFARIN
  2. MIRALAX [Concomitant]
     Active Substance: POLYETHYLENE GLYCOL 3350
  3. MAGNESIUM OXIDE. [Concomitant]
     Active Substance: MAGNESIUM OXIDE
  4. MEXILETINE [Concomitant]
     Active Substance: MEXILETINE
  5. PANTOPRAZOLE [Concomitant]
     Active Substance: PANTOPRAZOLE
  6. TEMAZEPAM. [Concomitant]
     Active Substance: TEMAZEPAM
  7. ATORVASTIN [Concomitant]
     Active Substance: ATORVASTATIN
  8. NAFCILLIN [Concomitant]
     Active Substance: NAFCILLIN\NAFCILLIN SODIUM
  9. BUMETANIDE. [Concomitant]
     Active Substance: BUMETANIDE
  10. SENNOSIDES A+B [Concomitant]
     Active Substance: SENNOSIDES A AND B
  11. AMBRISENTAN [Suspect]
     Active Substance: AMBRISENTAN
     Indication: PULMONARY HYPERTENSION
     Dosage: 10 MG, QD
     Route: 048
     Dates: start: 20170215
  12. SERTRALINE [Concomitant]
     Active Substance: SERTRALINE HYDROCHLORIDE
  13. METOPROLOL SUCCINATE. [Concomitant]
     Active Substance: METOPROLOL SUCCINATE
  14. AMIODARONE [Concomitant]
     Active Substance: AMIODARONE
  15. ASPIRIN                            /00002701/ [Concomitant]
     Active Substance: ASPIRIN

REACTIONS (4)
  - Neck pain [Not Recovered/Not Resolved]
  - Pyrexia [Recovered/Resolved]
  - Muscle spasms [Not Recovered/Not Resolved]
  - Staphylococcal sepsis [Recovered/Resolved]

NARRATIVE: CASE EVENT DATE: 20180403
